FAERS Safety Report 16004231 (Version 1)
Quarter: 2019Q1

REPORT INFORMATION
  Report Type: Spontaneous
  Country: US (occurrence: US)
  Receive Date: 20190225
  Receipt Date: 20190225
  Transmission Date: 20190418
  Serious: Yes (Hospitalization)
  Sender: FDA-Public Use
  Company Number: None

PATIENT
  Age: 57 Year
  Sex: Female

DRUGS (10)
  1. POT CHLORIDE [Concomitant]
     Active Substance: POTASSIUM CHLORIDE
     Dates: start: 20180220
  2. METOPROL TAR [Concomitant]
     Dates: start: 20180220
  3. AMLODIPINE [Concomitant]
     Active Substance: AMLODIPINE BESYLATE
     Dates: start: 20180220
  4. OLM MED/HCTZ [Concomitant]
     Dates: start: 20180220
  5. VITAMIN B12 [Concomitant]
     Active Substance: CYANOCOBALAMIN
     Dates: start: 20180220
  6. XELJANZ [Suspect]
     Active Substance: TOFACITINIB CITRATE
     Indication: RHEUMATOID ARTHRITIS
     Route: 048
  7. TRAMADOL HCL [Concomitant]
     Active Substance: TRAMADOL HYDROCHLORIDE
     Dates: start: 20180220
  8. ARAVA [Concomitant]
     Active Substance: LEFLUNOMIDE
     Dates: start: 20180220
  9. ATORVASTATIN [Concomitant]
     Active Substance: ATORVASTATIN
     Dates: start: 20180220
  10. CALCIUM [Concomitant]
     Active Substance: CALCIUM
     Dates: start: 20180220

REACTIONS (5)
  - Osteopenia [None]
  - Depression [None]
  - Joint swelling [None]
  - Pneumonia [None]
  - Arthralgia [None]

NARRATIVE: CASE EVENT DATE: 20180901
